FAERS Safety Report 18943185 (Version 1)
Quarter: 2021Q1

REPORT INFORMATION
  Report Type: Spontaneous
  Country: US (occurrence: US)
  Receive Date: 20210225
  Receipt Date: 20210225
  Transmission Date: 20210420
  Serious: Yes (Hospitalization)
  Sender: FDA-Public Use
  Company Number: None

PATIENT
  Age: 64 Year
  Sex: Female

DRUGS (3)
  1. NAPROXEN. [Concomitant]
     Active Substance: NAPROXEN
  2. CYCLOBENZAPR [Concomitant]
     Active Substance: CYCLOBENZAPRINE
  3. XOLAIR [Suspect]
     Active Substance: OMALIZUMAB
     Indication: URTICARIA
     Route: 058
     Dates: start: 20201229

REACTIONS (2)
  - Lip swelling [None]
  - Oropharyngeal pain [None]

NARRATIVE: CASE EVENT DATE: 20210211
